FAERS Safety Report 7325193-8 (Version None)
Quarter: 2011Q1

REPORT INFORMATION
  Report Type: 
  Country: None (occurrence: None)
  Receive Date: 20110218
  Receipt Date: 20110207
  Transmission Date: 20110831
  Serious: Yes (Life-Threatening)
  Sender: FDA-Public Use
  Company Number: 2010MA001010

PATIENT
  Age: 61 Year
  Sex: Female

DRUGS (2)
  1. FLUOXETINE [Suspect]
     Indication: DEPRESSION
  2. CHANTIX [Suspect]
     Indication: PRODUCT USED FOR UNKNOWN INDICATION
     Dosage: 1MG, BID, PO
     Route: 048
     Dates: start: 20090415, end: 20090710

REACTIONS (3)
  - DEPRESSION SUICIDAL [None]
  - DYSPEPSIA [None]
  - DRUG INTERACTION [None]
